FAERS Safety Report 13982221 (Version 2)
Quarter: 2017Q4

REPORT INFORMATION
  Report Type: Spontaneous
  Country: JP (occurrence: JP)
  Receive Date: 20170918
  Receipt Date: 20171130
  Transmission Date: 20180321
  Serious: Yes (Death)
  Sender: FDA-Public Use
  Company Number: JP-BAYER-2017-172601

PATIENT
  Age: 87 Year
  Sex: Male

DRUGS (4)
  1. ENALAPRIL [Concomitant]
     Active Substance: ENALAPRIL
     Dosage: DAILY DOSE 2 T
     Route: 048
  2. AMLODIPINE [Concomitant]
     Active Substance: AMLODIPINE BESYLATE
     Indication: HYPERTENSION
     Dosage: DAILY DOSE 1 T
     Route: 048
  3. BAYASPIRIN 100 MG [Suspect]
     Active Substance: ASPIRIN
     Dosage: DAILY DOSE 1 T
     Route: 048
  4. ARICEPT [Concomitant]
     Active Substance: DONEPEZIL HYDROCHLORIDE
     Dosage: DAILY DOSE 1 T
     Route: 048

REACTIONS (5)
  - Thalamus haemorrhage [Fatal]
  - Coma [Fatal]
  - Glossoptosis [Fatal]
  - Mydriasis [Fatal]
  - Altered state of consciousness [Fatal]

NARRATIVE: CASE EVENT DATE: 20110311
